FAERS Safety Report 20686139 (Version 1)
Quarter: 2022Q2

REPORT INFORMATION
  Report Type: Spontaneous
  Country: US (occurrence: US)
  Receive Date: 20220407
  Receipt Date: 20220407
  Transmission Date: 20220720
  Serious: No
  Sender: FDA-Public Use
  Company Number: US-JAZZ-2022-US-001485

PATIENT
  Sex: Female

DRUGS (4)
  1. SUNOSI [Suspect]
     Active Substance: SOLRIAMFETOL
     Indication: Product used for unknown indication
  2. NUVIGIL [Concomitant]
     Active Substance: ARMODAFINIL
  3. PROVIGIL [Concomitant]
     Active Substance: MODAFINIL
  4. WAKIX [Concomitant]
     Active Substance: PITOLISANT HYDROCHLORIDE

REACTIONS (1)
  - Blood pressure increased [Unknown]
